FAERS Safety Report 9387667 (Version 2)
Quarter: 2013Q3

REPORT INFORMATION
  Report Type: Spontaneous
  Country: US (occurrence: US)
  Receive Date: 20130708
  Receipt Date: 20130814
  Transmission Date: 20140515
  Serious: Yes (Other)
  Sender: FDA-Public Use
  Company Number: US-ASTELLAS-2013US006969

PATIENT
  Age: 63 Year
  Sex: Female

DRUGS (1)
  1. MYRBETRIQ [Suspect]
     Indication: URGE INCONTINENCE
     Dosage: 25 MG, UID/QD
     Route: 048
     Dates: start: 20130611

REACTIONS (2)
  - Ear infection [Unknown]
  - Respiratory tract infection [Unknown]
